FAERS Safety Report 4358435-1 (Version None)
Quarter: 2004Q2

REPORT INFORMATION
  Report Type: 
  Country: None (occurrence: None)
  Receive Date: 20040514
  Receipt Date: 20040507
  Transmission Date: 20050107
  Serious: Yes (Other)
  Sender: FDA-Public Use
  Company Number: FR-ROCHE-367415

PATIENT
  Sex: Male
  Weight: 2.6 kg

DRUGS (4)
  1. CELLCEPT [Suspect]
     Dates: start: 20000315
  2. CELLCEPT [Suspect]
     Dates: start: 19991123, end: 19991215
  3. CELLCEPT [Suspect]
     Dates: start: 19991215, end: 20000115
  4. CELLCEPT [Suspect]
     Dates: start: 20000115, end: 20000115

REACTIONS (9)
  - ABORTION INDUCED [None]
  - CHORIOAMNIONITIS [None]
  - COMPLICATIONS OF MATERNAL EXPOSURE TO THERAPEUTIC DRUGS [None]
  - LEUKOPENIA [None]
  - MATERNAL DRUGS AFFECTING FOETUS [None]
  - MULTIPLE CONGENITAL ABNORMALITIES [None]
  - PREGNANCY [None]
  - PREMATURE BABY [None]
  - TRANSPLANT REJECTION [None]
